FAERS Safety Report 14829835 (Version 2)
Quarter: 2019Q1

REPORT INFORMATION
  Report Type: Spontaneous
  Country: US (occurrence: US)
  Receive Date: 20180430
  Receipt Date: 20190320
  Transmission Date: 20190417
  Serious: Yes (Other)
  Sender: FDA-Public Use
  Company Number: US-ASTRAZENECA-2018SE52465

PATIENT
  Age: 21578 Day
  Sex: Female
  Weight: 89.5 kg

DRUGS (14)
  1. PRILOSEC OTC [Suspect]
     Active Substance: OMEPRAZOLE MAGNESIUM
     Route: 048
     Dates: start: 20110907
  2. TRAMADOL. [Concomitant]
     Active Substance: TRAMADOL
  3. PREDNISONE. [Concomitant]
     Active Substance: PREDNISONE
  4. ALBUTEROL. [Concomitant]
     Active Substance: ALBUTEROL
  5. PROTONIX [Suspect]
     Active Substance: PANTOPRAZOLE SODIUM
     Route: 065
     Dates: start: 2000, end: 2016
  6. CRESTOR [Concomitant]
     Active Substance: ROSUVASTATIN CALCIUM
  7. LISINOPRIL. [Concomitant]
     Active Substance: LISINOPRIL
  8. PRILOSEC [Suspect]
     Active Substance: OMEPRAZOLE MAGNESIUM
     Route: 048
     Dates: start: 2000
  9. CLONIDINE. [Concomitant]
     Active Substance: CLONIDINE
  10. AMLODIPINE [Concomitant]
     Active Substance: AMLODIPINE BESYLATE
  11. VITAMIN D [Concomitant]
     Active Substance: CHOLECALCIFEROL
  12. PRILOSEC OTC [Suspect]
     Active Substance: OMEPRAZOLE MAGNESIUM
     Route: 048
     Dates: start: 2000, end: 2016
  13. NYSTATIN. [Concomitant]
     Active Substance: NYSTATIN
  14. SIMVASTATIN. [Concomitant]
     Active Substance: SIMVASTATIN

REACTIONS (5)
  - Renal failure [Unknown]
  - Tubulointerstitial nephritis [Unknown]
  - Chronic kidney disease [Unknown]
  - Acute kidney injury [Unknown]
  - End stage renal disease [Unknown]

NARRATIVE: CASE EVENT DATE: 20110824
